FAERS Safety Report 19631658 (Version 2)
Quarter: 2021Q3

REPORT INFORMATION
  Report Type: Report from Study
  Country: IT (occurrence: IT)
  Receive Date: 20210729
  Receipt Date: 20210805
  Transmission Date: 20211014
  Serious: Yes (Death, Other)
  Sender: FDA-Public Use
  Company Number: IT-PFIZER INC-202100930833

PATIENT

DRUGS (2)
  1. TOSEDOSTAT [Suspect]
     Active Substance: TOSEDOSTAT
     Indication: ACUTE MYELOID LEUKAEMIA
     Dosage: 120 MG, 1X/DAY, FROM DAY 1 TO 240
     Route: 048
  2. CYTARABINE. [Suspect]
     Active Substance: CYTARABINE
     Indication: ACUTE MYELOID LEUKAEMIA
     Dosage: 20 MG, 2X/DAY, FROM DAY 1 TO 10
     Route: 058

REACTIONS (2)
  - Respiratory failure [Fatal]
  - Pneumonia [Fatal]
